FAERS Safety Report 8369460-8 (Version None)
Quarter: 2012Q2

REPORT INFORMATION
  Report Type: 
  Country: None (occurrence: None)
  Receive Date: 20120518
  Receipt Date: 20120517
  Transmission Date: 20120825
  Serious: Yes (Other)
  Sender: FDA-Public Use
  Company Number: US-JNJFOC-20120508835

PATIENT

DRUGS (2)
  1. XARELTO [Suspect]
     Indication: KNEE OPERATION
     Route: 048
  2. XARELTO [Suspect]
     Indication: HIP SURGERY
     Route: 048

REACTIONS (3)
  - FEELING ABNORMAL [None]
  - POSTOPERATIVE WOUND COMPLICATION [None]
  - PYREXIA [None]
